FAERS Safety Report 9337930 (Version 1)
Quarter: 2013Q2

REPORT INFORMATION
  Report Type: Spontaneous
  Country: US (occurrence: US)
  Receive Date: 20130609
  Receipt Date: 20130609
  Transmission Date: 20140414
  Serious: No
  Sender: FDA-Public Use
  Company Number: US-TEVA-407743USA

PATIENT
  Age: 75 Year
  Sex: Female
  Weight: 85.81 kg

DRUGS (9)
  1. AZILECT [Suspect]
     Indication: PARKINSON^S DISEASE
     Route: 048
     Dates: start: 20130422, end: 20130515
  2. AZILECT [Suspect]
     Dates: start: 20130512, end: 20130515
  3. TRILIPIX [Concomitant]
     Dosage: EVERY DAY
     Dates: start: 2012
  4. VITAMIN B 12 [Concomitant]
     Dosage: EVERY DAY
     Route: 048
     Dates: start: 2012
  5. AMIODARONE [Concomitant]
     Indication: CARDIAC DISORDER
     Dosage: EVERY DAY
     Route: 048
     Dates: start: 2012
  6. BABY ASPIRIN [Concomitant]
     Indication: CARDIAC DISORDER
     Dosage: EVERY DAY
     Route: 048
     Dates: start: 2012
  7. MICARDIS [Concomitant]
     Indication: BLOOD PRESSURE
     Dosage: EVERY DAY
     Route: 048
  8. PRADAXA [Concomitant]
     Indication: ANTICOAGULANT THERAPY
     Dosage: TWICE A DAY
     Route: 048
     Dates: start: 2012
  9. CARB/LEVO [Concomitant]
     Indication: PARKINSON^S DISEASE
     Dosage: TWICE A DAY
     Route: 048
     Dates: start: 20130521

REACTIONS (1)
  - Tremor [Not Recovered/Not Resolved]
